FAERS Safety Report 18439622 (Version 2)
Quarter: 2020Q4

REPORT INFORMATION
  Report Type: Other
  Country: IT (occurrence: IT)
  Receive Date: 20201029
  Receipt Date: 20201104
  Transmission Date: 20210114
  Serious: Yes (Other)
  Sender: FDA-Public Use
  Company Number: IT-ROCHE-2702123

PATIENT

DRUGS (1)
  1. ESBRIET [Suspect]
     Active Substance: PIRFENIDONE
     Indication: IDIOPATHIC PULMONARY FIBROSIS
     Dosage: 3 TABLETS 267 MG 3/DIE (2403 MG/DIE)
     Route: 048

REACTIONS (1)
  - Gastrointestinal disorder [Unknown]
